FAERS Safety Report 16744405 (Version 1)
Quarter: 2019Q3

REPORT INFORMATION
  Report Type: Spontaneous
  Country: GB (occurrence: GB)
  Receive Date: 20190827
  Receipt Date: 20190827
  Transmission Date: 20191005
  Serious: Yes (Other)
  Sender: FDA-Public Use
  Company Number: GB-AUROBINDO-AUR-APL-2019-056527

PATIENT

DRUGS (2)
  1. CLOPIDOGREL [Suspect]
     Active Substance: CLOPIDOGREL BISULFATE
     Indication: PRODUCT USED FOR UNKNOWN INDICATION
     Dosage: UNK UNK, UNKNOWN
     Route: 065
  2. TERIPARATIDE [Suspect]
     Active Substance: TERIPARATIDE
     Indication: OSTEOPOROSIS
     Dosage: 20 MICROGRAM, ONCE A DAY
     Route: 058
     Dates: start: 20180106

REACTIONS (11)
  - Skin cancer [Unknown]
  - Limb discomfort [Unknown]
  - Muscle spasms [Unknown]
  - Blood calcium increased [Unknown]
  - Pain [Unknown]
  - Spinal pain [Unknown]
  - Abdominal pain upper [Unknown]
  - Pain in extremity [Unknown]
  - Gait disturbance [Unknown]
  - Dysuria [Unknown]
  - Nephrolithiasis [Unknown]
